FAERS Safety Report 16985779 (Version 2)
Quarter: 2019Q4

REPORT INFORMATION
  Report Type: Report from Study
  Country: SV (occurrence: SV)
  Receive Date: 20191101
  Receipt Date: 20191118
  Transmission Date: 20200122
  Serious: Yes (Death, Hospitalization, Other)
  Sender: FDA-Public Use
  Company Number: NVSC2019SV022002

PATIENT
  Age: 28 Year
  Sex: Male
  Weight: 93 kg

DRUGS (1)
  1. GLIVEC [Suspect]
     Active Substance: IMATINIB MESYLATE
     Indication: ACUTE LEUKAEMIA
     Dosage: 400 MG, BID (EVERY 12 HOURS)
     Route: 048
     Dates: start: 20190828

REACTIONS (6)
  - Dysstasia [Unknown]
  - Cerebral haemorrhage [Fatal]
  - Bone marrow infiltration [Unknown]
  - Inappropriate schedule of product administration [Unknown]
  - Pancytopenia [Unknown]
  - Pyrexia [Unknown]

NARRATIVE: CASE EVENT DATE: 201910
